FAERS Safety Report 13891309 (Version 1)
Quarter: 2017Q3

REPORT INFORMATION
  Report Type: Spontaneous
  Country: US (occurrence: US)
  Receive Date: 20170822
  Receipt Date: 20170822
  Transmission Date: 20171127
  Serious: No
  Sender: FDA-Public Use
  Company Number: US-PFIZER INC-2017357463

PATIENT
  Sex: Female

DRUGS (1)
  1. METHOTREXATE SODIUM. [Suspect]
     Active Substance: METHOTREXATE SODIUM
     Dosage: 8 DF, WEEKLY (2.5 MG 8 PILLS WEEKLY)

REACTIONS (3)
  - Rash [Unknown]
  - Anti-cyclic citrullinated peptide antibody positive [Unknown]
  - Rheumatoid factor positive [Unknown]
